FAERS Safety Report 7205882-6 (Version None)
Quarter: 2010Q4

REPORT INFORMATION
  Report Type: 
  Country: None (occurrence: None)
  Receive Date: 20101231
  Receipt Date: 20101221
  Transmission Date: 20110411
  Serious: Yes (Hospitalization, Disabling, Other)
  Sender: FDA-Public Use
  Company Number: US-CELGENEUS-163-21880-10080598

PATIENT
  Sex: Male
  Weight: 51.302 kg

DRUGS (9)
  1. REVLIMID [Suspect]
     Indication: MULTIPLE MYELOMA
     Route: 048
     Dates: start: 20100401, end: 20100601
  2. REVLIMID [Suspect]
     Route: 048
     Dates: start: 20100707, end: 20101007
  3. REVLIMID [Suspect]
     Route: 048
     Dates: start: 20100101
  4. DECADRON [Concomitant]
     Route: 048
  5. ASPIRIN [Concomitant]
     Route: 048
     Dates: start: 20100701
  6. OXYCODONE [Concomitant]
     Indication: PAIN
     Route: 048
     Dates: start: 20100907
  7. AMBIEN [Concomitant]
     Indication: INSOMNIA
     Route: 048
     Dates: start: 20100101
  8. MAGNESIUM OXIDE [Concomitant]
     Route: 048
     Dates: start: 20101028
  9. TRANSFUSION [Concomitant]
     Route: 051
     Dates: start: 20100101, end: 20100101

REACTIONS (10)
  - ARTHRALGIA [None]
  - ASTHENIA [None]
  - DRY MOUTH [None]
  - FAILURE TO THRIVE [None]
  - FATIGUE [None]
  - GOUT [None]
  - PANCYTOPENIA [None]
  - RENAL FAILURE ACUTE [None]
  - RHINORRHOEA [None]
  - WEIGHT DECREASED [None]
